FAERS Safety Report 12665876 (Version 1)
Quarter: 2016Q3

REPORT INFORMATION
  Report Type: Spontaneous
  Country: US (occurrence: US)
  Receive Date: 20160818
  Receipt Date: 20160818
  Transmission Date: 20161109
  Serious: No
  Sender: FDA-Public Use
  Company Number: US-ENDO PHARMACEUTICALS INC.-2016-002225

PATIENT
  Sex: Female
  Weight: 88.98 kg

DRUGS (3)
  1. CODEINE PHOSPHATE / ACETAMINOPHEN 30MG/300MG [Concomitant]
     Indication: PAIN
  2. GLIMEPIRIDE TABLETS [Concomitant]
     Active Substance: GLIMEPIRIDE
     Indication: DIABETES MELLITUS
  3. METFORMIN [Suspect]
     Active Substance: METFORMIN HYDROCHLORIDE
     Indication: DIABETES MELLITUS
     Route: 048

REACTIONS (2)
  - Pain in extremity [Recovered/Resolved]
  - Diarrhoea [Recovered/Resolved]
